FAERS Safety Report 4540965-0 (Version None)
Quarter: 2004Q4

REPORT INFORMATION
  Report Type: 
  Country: None (occurrence: None)
  Receive Date: 20041228
  Receipt Date: 20041216
  Transmission Date: 20050328
  Serious: No
  Sender: FDA-Public Use
  Company Number: 2004CG02587

PATIENT
  Age: 52 Year
  Sex: Male
  Weight: 137 kg

DRUGS (3)
  1. NEXIUM [Suspect]
     Indication: GASTROOESOPHAGEAL REFLUX DISEASE
     Dosage: 40 MG QD PO
     Route: 048
     Dates: start: 20040801, end: 20041201
  2. LEVOTHYROX [Concomitant]
  3. CALCIUM SANDOZ C [Concomitant]

REACTIONS (8)
  - CHEST PAIN [None]
  - DISORIENTATION [None]
  - HALLUCINATION, AUDITORY [None]
  - INSOMNIA [None]
  - MEMORY IMPAIRMENT [None]
  - NIGHTMARE [None]
  - PALPITATIONS [None]
  - PSYCHOSOMATIC DISEASE [None]
